FAERS Safety Report 17314970 (Version 1)
Quarter: 2020Q1

REPORT INFORMATION
  Report Type: Spontaneous
  Country: US (occurrence: US)
  Receive Date: 20200124
  Receipt Date: 20200124
  Transmission Date: 20200409
  Serious: No
  Sender: FDA-Public Use
  Company Number: US-PCCINC-2019-PEL-000370

PATIENT

DRUGS (7)
  1. TRANZINE [Concomitant]
     Active Substance: CHLORPROMAZINE HYDROCHLORIDE
     Indication: PRODUCT USED FOR UNKNOWN INDICATION
     Dosage: UNK
     Route: 065
  2. GABLOFEN [Suspect]
     Active Substance: BACLOFEN
     Dosage: 764 MICROGRAM, PER DAY
     Route: 037
  3. LISINOPRIL. [Concomitant]
     Active Substance: LISINOPRIL
     Indication: PRODUCT USED FOR UNKNOWN INDICATION
     Dosage: UNK
     Route: 065
  4. GABLOFEN [Suspect]
     Active Substance: BACLOFEN
     Dosage: 17.2 BASELINE DOSE WITH A 60 MCG BOLUS DOSE EVERY 4 HOURS
     Route: 037
  5. BACLOFEN. [Concomitant]
     Active Substance: BACLOFEN
     Indication: PRODUCT USED FOR UNKNOWN INDICATION
     Dosage: AS NEEDED (PRN)
     Route: 048
  6. GABLOFEN [Suspect]
     Active Substance: BACLOFEN
     Indication: MUSCLE SPASTICITY
     Dosage: 650 MICROGRAM, PER DAY
     Route: 037
  7. GABLOFEN [Suspect]
     Active Substance: BACLOFEN
     Indication: CEREBRAL PALSY
     Dosage: 888 MICROGRAM, PER DAY
     Route: 037

REACTIONS (5)
  - Muscle spasticity [Unknown]
  - Withdrawal syndrome [Unknown]
  - Hypertonia [Unknown]
  - Clonus [Unknown]
  - Device kink [Unknown]

NARRATIVE: CASE EVENT DATE: 20190329
